FAERS Safety Report 23602200 (Version 1)
Quarter: 2024Q1

REPORT INFORMATION
  Report Type: Spontaneous
  Country: US (occurrence: US)
  Receive Date: 20240306
  Receipt Date: 20240306
  Transmission Date: 20240409
  Serious: Yes (Other)
  Sender: FDA-Public Use
  Company Number: US-SA-SAC20240305000739

PATIENT
  Age: 50 Year
  Sex: Female
  Weight: 117 kg

DRUGS (2)
  1. DUPIXENT [Suspect]
     Active Substance: DUPILUMAB
     Dosage: 300 MG, QOW
     Route: 058
     Dates: start: 20231109
  2. BENLYSTA [Concomitant]
     Active Substance: BELIMUMAB

REACTIONS (2)
  - Metabolic surgery [Unknown]
  - Hernia [Unknown]

NARRATIVE: CASE EVENT DATE: 20240201
